FAERS Safety Report 5922870-8 (Version None)
Quarter: 2008Q4

REPORT INFORMATION
  Report Type: 
  Country: None (occurrence: None)
  Receive Date: 20081017
  Receipt Date: 20081014
  Transmission Date: 20090506
  Serious: Yes (Life-Threatening, Hospitalization, Other)
  Sender: FDA-Public Use
  Company Number: PHHY2008JP14460

PATIENT
  Age: 81 Year
  Sex: Female

DRUGS (25)
  1. GLEEVEC [Suspect]
     Indication: CHRONIC MYELOID LEUKAEMIA
     Dosage: 200 MG, BID
     Route: 048
     Dates: start: 20050501
  2. GLEEVEC [Suspect]
     Dosage: 200 MG, BID
     Route: 048
     Dates: start: 20080708, end: 20080710
  3. GLEEVEC [Suspect]
     Dosage: 200 MG
     Route: 048
     Dates: start: 20080801
  4. PROTON PUMP INHIBITORS [Concomitant]
  5. LUPRAC [Concomitant]
     Dosage: 8 MG
     Route: 048
  6. LUPRAC [Concomitant]
     Dosage: 4 MG
     Route: 048
  7. ALDACTONE [Concomitant]
     Dosage: 25 MG
     Route: 048
  8. ALDACTONE [Concomitant]
     Dosage: 100 MG
     Route: 048
  9. ASPIRIN [Concomitant]
     Dosage: 1 DF
     Route: 048
  10. ASPIRIN [Concomitant]
     Dosage: 100 MG
     Route: 048
  11. BLOPRESS [Concomitant]
     Dosage: 2 DF
     Route: 048
  12. NEUQUINON [Concomitant]
     Dosage: 30 MG
     Route: 048
  13. NEUQUINON [Concomitant]
     Dosage: 30 MG
     Route: 048
  14. ZANTAC [Concomitant]
     Dosage: 150 MG
     Route: 048
  15. WARFARIN SODIUM [Concomitant]
     Dosage: 2.5 MG
     Route: 048
  16. WARFARIN SODIUM [Concomitant]
     Dosage: 2 MG
     Route: 048
  17. WARFARIN SODIUM [Concomitant]
     Dosage: 2.5 MG
     Route: 048
  18. OMEPRAZOLE [Concomitant]
     Dosage: 20 MG
     Route: 048
  19. OMEPRAZOLE [Concomitant]
     Dosage: 20 MG
     Route: 048
  20. LASIX [Concomitant]
     Dosage: 160 MG
     Route: 048
  21. LASIX [Concomitant]
     Dosage: 160 MG
     Route: 048
  22. ZYLORIC [Concomitant]
     Dosage: 400 MG
     Route: 048
  23. ESPO [Concomitant]
     Dosage: 12000 DF
     Route: 058
  24. PLAVIX [Concomitant]
     Dosage: 75MG
     Route: 048
  25. GASMOTIN [Concomitant]
     Dosage: 45 MG
     Route: 048

REACTIONS (44)
  - AKINESIA [None]
  - ANAEMIA [None]
  - ANOREXIA [None]
  - ATRIOVENTRICULAR BLOCK [None]
  - ATRIOVENTRICULAR BLOCK COMPLETE [None]
  - BLOOD CREATININE INCREASED [None]
  - BLOOD POTASSIUM DECREASED [None]
  - BLOOD PRESSURE DECREASED [None]
  - BRADYCARDIA [None]
  - C-REACTIVE PROTEIN INCREASED [None]
  - CARDIAC FAILURE [None]
  - CARDIAC PACEMAKER INSERTION [None]
  - CHILLS [None]
  - CONDITION AGGRAVATED [None]
  - DISUSE SYNDROME [None]
  - DIZZINESS [None]
  - DYSPNOEA [None]
  - DYSPNOEA EXERTIONAL [None]
  - ELECTROLYTE IMBALANCE [None]
  - ESCHERICHIA INFECTION [None]
  - GASTRITIS ATROPHIC [None]
  - GASTRITIS EROSIVE [None]
  - GASTRITIS HAEMORRHAGIC [None]
  - GASTROINTESTINAL HAEMORRHAGE [None]
  - GASTROINTESTINAL TUBE INSERTION [None]
  - GASTROOESOPHAGEAL REFLUX DISEASE [None]
  - HAEMATEMESIS [None]
  - HEADACHE [None]
  - HEART RATE DECREASED [None]
  - HELICOBACTER INFECTION [None]
  - MICROCOCCUS INFECTION [None]
  - NAUSEA [None]
  - OEDEMA PERIPHERAL [None]
  - OLIGURIA [None]
  - OXYGEN SATURATION DECREASED [None]
  - PLEURAL EFFUSION [None]
  - PULMONARY CONGESTION [None]
  - PYREXIA [None]
  - RENAL FAILURE [None]
  - RENAL FAILURE CHRONIC [None]
  - RENAL IMPAIRMENT [None]
  - SEPSIS [None]
  - URINE OUTPUT DECREASED [None]
  - VOMITING [None]
